FAERS Safety Report 22049040 (Version 1)
Quarter: 2023Q1

REPORT INFORMATION
  Report Type: Spontaneous
  Country: DE (occurrence: DE)
  Receive Date: 20230301
  Receipt Date: 20230301
  Transmission Date: 20230418
  Serious: Yes (Life-Threatening, Hospitalization, Other)
  Sender: FDA-Public Use
  Company Number: DE-PEI-202300006186

PATIENT
  Age: 9 Year
  Sex: Male
  Weight: 22.7 kg

DRUGS (1)
  1. TOCILIZUMAB [Suspect]
     Active Substance: TOCILIZUMAB
     Indication: Rheumatoid arthritis
     Dosage: 1 DOSE
     Route: 065
     Dates: start: 202209

REACTIONS (4)
  - Parvimonas test positive [Unknown]
  - Aortic valve incompetence [Unknown]
  - Chest pain [Unknown]
  - Aortic aneurysm [Unknown]

NARRATIVE: CASE EVENT DATE: 20230106
